FAERS Safety Report 8395174-4 (Version None)
Quarter: 2012Q2

REPORT INFORMATION
  Report Type: 
  Country: None (occurrence: None)
  Receive Date: 20120524
  Receipt Date: 20120509
  Transmission Date: 20120825
  Serious: Yes (Hospitalization, Other)
  Sender: FDA-Public Use
  Company Number: 2012P1003309

PATIENT
  Age: 73 Year
  Sex: Male
  Weight: 90.7194 kg

DRUGS (5)
  1. LISINOPRIL [Concomitant]
  2. FLUOROURACIL [Suspect]
     Indication: PRECANCEROUS SKIN LESION
     Dosage: BID; TOP
     Route: 061
     Dates: start: 20120101, end: 20120101
  3. TERAZOSIN HCL [Concomitant]
  4. CLOTRIMAZOLE AND BETAMETHASONE DIPROPIONATE [Suspect]
     Indication: TESTICULAR DISORDER
     Dates: start: 20120101, end: 20120101
  5. VITAMIN D [Concomitant]

REACTIONS (8)
  - PAIN [None]
  - ERYTHEMA [None]
  - BURNING SENSATION [None]
  - DRUG INEFFECTIVE [None]
  - ORCHITIS NONINFECTIVE [None]
  - TESTICULAR SWELLING [None]
  - INSOMNIA [None]
  - CHEMICAL INJURY [None]
